FAERS Safety Report 19246586 (Version 1)
Quarter: 2021Q2

REPORT INFORMATION
  Report Type: Spontaneous
  Country: US (occurrence: US)
  Receive Date: 20210512
  Receipt Date: 20210512
  Transmission Date: 20210717
  Serious: Yes (Death)
  Sender: FDA-Public Use
  Company Number: None

PATIENT
  Age: 63 Year
  Sex: Male
  Weight: 113.4 kg

DRUGS (1)
  1. CYTARABINE. [Suspect]
     Active Substance: CYTARABINE
     Dates: end: 20210416

REACTIONS (8)
  - Cyanosis [None]
  - Pulse absent [None]
  - Peripheral coldness [None]
  - Blood pressure decreased [None]
  - White blood cell count increased [None]
  - Acidosis [None]
  - Anuria [None]
  - Platelet count abnormal [None]

NARRATIVE: CASE EVENT DATE: 20210504
